FAERS Safety Report 9780578 (Version 2)
Quarter: 2013Q4

REPORT INFORMATION
  Report Type: Spontaneous
  Country: US (occurrence: US)
  Receive Date: 20131224
  Receipt Date: 20131230
  Transmission Date: 20140711
  Serious: Yes (Other)
  Sender: FDA-Public Use
  Company Number: US-009507513-1312USA010012

PATIENT
  Sex: Female

DRUGS (2)
  1. FOLLISTIM [Suspect]
     Indication: IN VITRO FERTILISATION
  2. GANIRELIX ACETATE INJECTION [Suspect]
     Indication: IN VITRO FERTILISATION

REACTIONS (2)
  - Abortion spontaneous [Unknown]
  - Drug ineffective [Unknown]
